FAERS Safety Report 11539802 (Version 1)
Quarter: 2015Q3

REPORT INFORMATION
  Report Type: Spontaneous
  Country: NZ (occurrence: NZ)
  Receive Date: 20150923
  Receipt Date: 20150923
  Transmission Date: 20151125
  Serious: Yes (Hospitalization)
  Sender: FDA-Public Use
  Company Number: NZ-ASTRAZENECA-2015SE89959

PATIENT
  Age: 75 Year
  Sex: Male

DRUGS (1)
  1. BRILINTA [Suspect]
     Active Substance: TICAGRELOR
     Route: 048

REACTIONS (2)
  - Anxiety [Unknown]
  - Dyspnoea [Unknown]
